FAERS Safety Report 12947419 (Version 3)
Quarter: 2019Q1

REPORT INFORMATION
  Report Type: Spontaneous
  Country: US (occurrence: US)
  Receive Date: 20161116
  Receipt Date: 20190306
  Transmission Date: 20190417
  Serious: Yes (Other)
  Sender: FDA-Public Use
  Company Number: US-PFIZER INC-2016528045

PATIENT
  Age: 78 Year
  Sex: Female
  Weight: 73 kg

DRUGS (1)
  1. PREMARIN [Suspect]
     Active Substance: ESTROGENS, CONJUGATED
     Indication: HORMONE REPLACEMENT THERAPY
     Dosage: UNK
     Dates: start: 1974

REACTIONS (5)
  - Pain [Unknown]
  - Neuropathy peripheral [Unknown]
  - Malaise [Unknown]
  - Transient ischaemic attack [Unknown]
  - Rheumatoid arthritis [Unknown]
